FAERS Safety Report 16338673 (Version 3)
Quarter: 2022Q4

REPORT INFORMATION
  Report Type: Report from Study
  Country: DE (occurrence: DE)
  Receive Date: 20190521
  Receipt Date: 20221227
  Transmission Date: 20230113
  Serious: Yes (Hospitalization)
  Sender: FDA-Public Use
  Company Number: DE-AMGEN-DEUNI2019077621

PATIENT
  Age: 67 Year
  Sex: Male
  Weight: 85 kg

DRUGS (21)
  1. PANITUMUMAB [Suspect]
     Active Substance: PANITUMUMAB
     Indication: Colorectal cancer metastatic
     Dosage: 474 MILLIGRAM
     Route: 040
     Dates: start: 20190325
  2. LEUCOVORIN [Suspect]
     Active Substance: LEUCOVORIN
     Indication: Colorectal cancer metastatic
     Dosage: 800 MILLIGRAM
     Route: 065
     Dates: start: 20190311
  3. LEUCOVORIN [Suspect]
     Active Substance: LEUCOVORIN
     Dosage: 791 MILLIGRAM
     Route: 065
     Dates: start: 20190325
  4. FLUOROURACIL [Suspect]
     Active Substance: FLUOROURACIL
     Indication: Colorectal cancer metastatic
     Dosage: 1200 MILLIGRAM
     Route: 040
     Dates: start: 20190311
  5. FLUOROURACIL [Suspect]
     Active Substance: FLUOROURACIL
     Dosage: 800 MILLIGRAM
     Route: 042
     Dates: start: 20190311
  6. FLUOROURACIL [Suspect]
     Active Substance: FLUOROURACIL
     Dosage: 1187 MILLIGRAM
     Route: 040
     Dates: start: 20190325
  7. FLUOROURACIL [Suspect]
     Active Substance: FLUOROURACIL
     Dosage: 791 MILLIGRAM
     Route: 042
     Dates: start: 20190325
  8. OXALIPLATIN [Suspect]
     Active Substance: OXALIPLATIN
     Indication: Colorectal cancer metastatic
     Dosage: 85 MILLIGRAM
     Route: 065
     Dates: start: 20190311
  9. OXALIPLATIN [Suspect]
     Active Substance: OXALIPLATIN
     Dosage: 84 MILLIGRAM
     Route: 065
     Dates: start: 20190325
  10. BISOPROLOL FUMARATE [Concomitant]
     Active Substance: BISOPROLOL FUMARATE
     Indication: Hypertension
     Dosage: 2.5 MILLIGRAM, TID
     Route: 048
     Dates: start: 20190218
  11. PANTOPRAZOLE SODIUM [Concomitant]
     Active Substance: PANTOPRAZOLE SODIUM
     Dosage: 40 MILLIGRAM, QD
     Route: 048
     Dates: start: 20190218
  12. ENOXAPARIN [Concomitant]
     Active Substance: ENOXAPARIN
     Indication: Thrombosis prophylaxis
     Dosage: 40 MILLILITER, QD
     Route: 048
     Dates: start: 20190218, end: 20190322
  13. VALSARTAN [Concomitant]
     Active Substance: VALSARTAN
     Indication: Hypertension
     Dosage: 160 MILLIGRAM, QD
     Route: 048
     Dates: start: 20190218, end: 20190415
  14. BETAHISTINE DIMESILATE [Concomitant]
     Indication: Meniere^s disease
     Dosage: 6 MILLIGRAM, TID
     Route: 048
     Dates: start: 20190218, end: 20190415
  15. HYDROMORPHONE [Concomitant]
     Active Substance: HYDROMORPHONE
     Dosage: 8 MILLIGRAM, BID
     Route: 048
     Dates: start: 20190423
  16. ACETAMINOPHEN [Concomitant]
     Active Substance: ACETAMINOPHEN
     Dosage: 500 MILLIGRAM, TID
     Route: 048
     Dates: start: 20190301, end: 20190415
  17. DIMENHYDRINATE [Concomitant]
     Active Substance: DIMENHYDRINATE
     Dosage: 150 MILLIGRAM, PRN
     Route: 048
     Dates: start: 20190301, end: 20190414
  18. ONDANSETRON [Concomitant]
     Active Substance: ONDANSETRON
     Dosage: 8 MILLIGRAM, PRN (AS NEEDED)
     Route: 048
     Dates: start: 20190415
  19. DOXYCYCLINE [Concomitant]
     Active Substance: DOXYCYCLINE
     Dosage: 100 MILLIGRAM, QD
     Route: 048
     Dates: start: 20190415
  20. METAMIZOLE [Concomitant]
     Active Substance: METAMIZOLE
     Dosage: 30 MILLIGRAM, PRN (AS NEEDED)
     Route: 048
     Dates: start: 20190415
  21. NALOXONE HYDROCHLORIDE\TILIDINE HYDROCHLORIDE [Concomitant]
     Active Substance: NALOXONE HYDROCHLORIDE\TILIDINE HYDROCHLORIDE
     Dosage: 50 MILLIGRAM, BID
     Route: 048
     Dates: start: 20190415, end: 20190423

REACTIONS (3)
  - Sinus tachycardia [Recovering/Resolving]
  - Dyspnoea [Recovering/Resolving]
  - Vomiting [Unknown]

NARRATIVE: CASE EVENT DATE: 20190424
